FAERS Safety Report 9878463 (Version 1)
Quarter: 2014Q1

REPORT INFORMATION
  Report Type: Spontaneous
  Country: US (occurrence: US)
  Receive Date: 20140206
  Receipt Date: 20140206
  Transmission Date: 20141002
  Serious: No
  Sender: FDA-Public Use
  Company Number: US-ALLERGAN-1311931US

PATIENT
  Age: 56 Year
  Sex: Female

DRUGS (10)
  1. BOTOX [Suspect]
     Indication: MUSCLE SPASMS
     Dosage: UNK UNK, SINGLE
     Route: 030
     Dates: start: 20130731, end: 20130731
  2. BOTOX [Suspect]
     Indication: MUSCLE SPASMS
  3. BUSPAR [Concomitant]
     Indication: PRODUCT USED FOR UNKNOWN INDICATION
     Dosage: UNK
     Route: 048
  4. PROZAC [Concomitant]
     Indication: PRODUCT USED FOR UNKNOWN INDICATION
     Dosage: UNK
     Route: 048
  5. TRAZODONE [Concomitant]
     Indication: SLEEP DISORDER
     Dosage: 200 MG, QHS
     Route: 048
  6. SYNTHROID [Concomitant]
     Indication: THYROIDECTOMY
     Dosage: 0.15 MG, QD
     Route: 048
  7. ESTROGEN [Concomitant]
     Indication: OOPHORECTOMY
     Dosage: 0.625 MG, UNK
     Route: 048
  8. KLONOPIN [Concomitant]
     Indication: PRODUCT USED FOR UNKNOWN INDICATION
     Dosage: UNK
  9. CELEBREX [Concomitant]
     Indication: ARTHRALGIA
     Dosage: 200 MG, BID
     Route: 048
  10. CELEBREX [Concomitant]
     Dosage: 200 MG, QD
     Route: 048

REACTIONS (3)
  - Pain [Recovering/Resolving]
  - Off label use [Unknown]
  - Therapeutic response decreased [Unknown]
